FAERS Safety Report 9913709 (Version 1)
Quarter: 2014Q1

REPORT INFORMATION
  Report Type: Spontaneous
  Country: US (occurrence: None)
  Receive Date: 20140212
  Receipt Date: 20140212
  Transmission Date: 20141002
  Serious: Yes (Death)
  Sender: FDA-Public Use
  Company Number: AUR-APL-2014-00848

PATIENT
  Age: 48 Year
  Sex: Female

DRUGS (3)
  1. FLUOXETINE [Suspect]
  2. METHADONE(METHADONE) [Suspect]
  3. COCAINE [Suspect]

REACTIONS (2)
  - Drug abuse [None]
  - Toxicity to various agents [None]
